FAERS Safety Report 18206677 (Version 3)
Quarter: 2020Q4

REPORT INFORMATION
  Report Type: Report from Study
  Country: CL (occurrence: CL)
  Receive Date: 20200828
  Receipt Date: 20201203
  Transmission Date: 20210113
  Serious: Yes (Other)
  Sender: FDA-Public Use
  Company Number: CL-INCYTE CORPORATION-2020IN007602

PATIENT

DRUGS (5)
  1. JAKAVI [Suspect]
     Active Substance: RUXOLITINIB
     Dosage: 15 MG, Q12H
     Route: 048
     Dates: start: 20200722
  2. JAKAVI [Suspect]
     Active Substance: RUXOLITINIB
     Dosage: 10 MG, Q12H
     Route: 048
     Dates: start: 20200622, end: 20200721
  3. JAKAVI [Suspect]
     Active Substance: RUXOLITINIB
     Indication: MYELOFIBROSIS
     Dosage: 15 MG, BID
     Route: 048
     Dates: start: 202004
  4. JAKAVI [Suspect]
     Active Substance: RUXOLITINIB
     Dosage: 20 MG, Q24H
     Route: 048
     Dates: start: 20200423, end: 20200621
  5. ACEBRON [Suspect]
     Active Substance: ACENOCOUMAROL
     Indication: HYPERCOAGULATION
     Dosage: UNK
     Route: 065

REACTIONS (41)
  - Haemoglobin decreased [Unknown]
  - Ecchymosis [Unknown]
  - Splenomegaly [Unknown]
  - Product administration error [Unknown]
  - Nausea [Unknown]
  - Pain [Unknown]
  - Abdominal pain [Recovering/Resolving]
  - Abdominal pain upper [Recovering/Resolving]
  - Prothrombin level decreased [Unknown]
  - Prothrombin time abnormal [Unknown]
  - Inflammation [Unknown]
  - Fatigue [Recovered/Resolved with Sequelae]
  - Blood urea increased [Unknown]
  - Treatment failure [Unknown]
  - Dilatation atrial [Unknown]
  - Faeces discoloured [Unknown]
  - Haematocrit decreased [Unknown]
  - Yellow skin [Unknown]
  - Anaemia [Recovered/Resolved with Sequelae]
  - Pain in extremity [Recovered/Resolved]
  - Myelofibrosis [Unknown]
  - Pulmonary hypertension [Unknown]
  - Vomiting [Unknown]
  - Diarrhoea [Unknown]
  - Red blood cell count decreased [Unknown]
  - Headache [Unknown]
  - Myocardial infarction [Unknown]
  - Hypercoagulation [Unknown]
  - Coagulopathy [Not Recovered/Not Resolved]
  - Blood glucose increased [Unknown]
  - Lymphadenopathy [Recovering/Resolving]
  - Back pain [Recovered/Resolved]
  - Platelet count decreased [Unknown]
  - Investigation abnormal [Unknown]
  - Discomfort [Unknown]
  - Dizziness [Recovered/Resolved with Sequelae]
  - Memory impairment [Unknown]
  - White blood cell count decreased [Unknown]
  - Musculoskeletal chest pain [Unknown]
  - Blood lactate dehydrogenase increased [Unknown]
  - Arthralgia [Not Recovered/Not Resolved]

NARRATIVE: CASE EVENT DATE: 20200618
